FAERS Safety Report 19120769 (Version 1)
Quarter: 2021Q2

REPORT INFORMATION
  Report Type: Report from Study
  Country: GB (occurrence: GB)
  Receive Date: 20210412
  Receipt Date: 20210412
  Transmission Date: 20210717
  Serious: Yes (Other)
  Sender: FDA-Public Use
  Company Number: GB-ACCORD-222443

PATIENT
  Age: 76 Year
  Sex: Male

DRUGS (4)
  1. METHOTREXATE. [Suspect]
     Active Substance: METHOTREXATE
     Indication: PRODUCT USED FOR UNKNOWN INDICATION
     Route: 065
  2. IMRALDI [Suspect]
     Active Substance: ADALIMUMAB
     Indication: PRODUCT USED FOR UNKNOWN INDICATION
     Route: 058
  3. SULFASALAZINE. [Suspect]
     Active Substance: SULFASALAZINE
     Indication: PRODUCT USED FOR UNKNOWN INDICATION
     Route: 065
  4. IMRALDI [Suspect]
     Active Substance: ADALIMUMAB
     Indication: PRODUCT USED FOR UNKNOWN INDICATION
     Dosage: WEEKLY FOR THREE WEEKS OF EACH MONTH (ONE WEEK OFF)
     Route: 058
     Dates: start: 20190822

REACTIONS (9)
  - Rheumatoid arthritis [Unknown]
  - Product use in unapproved indication [Unknown]
  - Blood pressure increased [Unknown]
  - Grip strength decreased [Recovering/Resolving]
  - Therapeutic response shortened [Unknown]
  - Adverse drug reaction [Unknown]
  - Paraesthesia [Unknown]
  - Weight decreased [Recovering/Resolving]
  - Inappropriate schedule of product administration [Unknown]
